FAERS Safety Report 17300888 (Version 2)
Quarter: 2020Q1

REPORT INFORMATION
  Report Type: Spontaneous
  Country: PT (occurrence: PT)
  Receive Date: 20200122
  Receipt Date: 20200207
  Transmission Date: 20200409
  Serious: Yes (Other)
  Sender: FDA-Public Use
  Company Number: PT-ALIMERA SCIENCES LIMITED-PT-IL-2019-004546

PATIENT
  Age: 68 Year
  Sex: Female

DRUGS (2)
  1. ILUVIEN [Suspect]
     Active Substance: FLUOCINOLONE ACETONIDE
     Indication: UVEITIS
     Dosage: 0.25 ?G, QD- LEFT EYE
     Route: 031
     Dates: start: 201911
  2. ILUVIEN [Suspect]
     Active Substance: FLUOCINOLONE ACETONIDE
     Indication: MACULAR OEDEMA

REACTIONS (4)
  - Device dislocation [Recovered/Resolved]
  - Corneal oedema [Unknown]
  - Off label use [Unknown]
  - Vitrectomy [Recovered/Resolved]

NARRATIVE: CASE EVENT DATE: 201911
